FAERS Safety Report 10236995 (Version 3)
Quarter: 2015Q3

REPORT INFORMATION
  Report Type: Spontaneous
  Country: BR (occurrence: BR)
  Receive Date: 20140613
  Receipt Date: 20150903
  Transmission Date: 20151125
  Serious: Yes (Other)
  Sender: FDA-Public Use
  Company Number: BR-ABBVIE-14P-020-1247699-00

PATIENT
  Sex: Female
  Weight: 67 kg

DRUGS (4)
  1. SYNTHROID [Suspect]
     Active Substance: LEVOTHYROXINE SODIUM
     Indication: HYPOTHYROIDISM
     Dosage: IN THE MORNING, AFTER FASTING: DAILY DOSE: 125MCG
     Route: 048
     Dates: start: 1994
  2. SYNTHROID [Suspect]
     Active Substance: LEVOTHYROXINE SODIUM
     Route: 048
  3. SYNTHROID [Suspect]
     Active Substance: LEVOTHYROXINE SODIUM
     Route: 048
  4. SYNTHROID [Suspect]
     Active Substance: LEVOTHYROXINE SODIUM
     Route: 048

REACTIONS (3)
  - Emotional distress [Recovered/Resolved]
  - Nodule [Recovered/Resolved]
  - Thyroidectomy [Recovered/Resolved]

NARRATIVE: CASE EVENT DATE: 2010
